FAERS Safety Report 7989876-9 (Version None)
Quarter: 2011Q4

REPORT INFORMATION
  Report Type: 
  Country: None (occurrence: None)
  Receive Date: 20111219
  Receipt Date: 20110119
  Transmission Date: 20120403
  Serious: No
  Sender: FDA-Public Use
  Company Number: US-ASTRAZENECA-2011SE03516

PATIENT
  Sex: Male
  Weight: 81.6 kg

DRUGS (5)
  1. LISINOPRIL [Concomitant]
     Indication: HYPERTENSION
  2. NIFEDIPINE [Concomitant]
     Indication: HYPERTENSION
  3. METOPROLOL TARTRATE [Concomitant]
     Indication: HYPERTENSION
  4. CRESTOR [Suspect]
     Route: 048
     Dates: end: 20101220
  5. PLAVIX [Concomitant]
     Indication: THROMBOSIS PROPHYLAXIS

REACTIONS (4)
  - DRUG DOSE OMISSION [None]
  - PAIN IN EXTREMITY [None]
  - MYALGIA [None]
  - ARTHRALGIA [None]
